FAERS Safety Report 20410639 (Version 1)
Quarter: 2022Q1

REPORT INFORMATION
  Report Type: Spontaneous
  Country: BR (occurrence: BR)
  Receive Date: 20220201
  Receipt Date: 20220201
  Transmission Date: 20220423
  Serious: Yes (Other)
  Sender: FDA-Public Use
  Company Number: BR-TAKEDA-2021TUS068199

PATIENT
  Sex: Female
  Weight: 52 kg

DRUGS (4)
  1. BRIGATINIB [Suspect]
     Active Substance: BRIGATINIB
     Indication: Neoplasm malignant
     Dosage: UNK
     Route: 065
  2. BRIGATINIB [Suspect]
     Active Substance: BRIGATINIB
     Dosage: 180 MILLIGRAM, QD
     Route: 065
     Dates: start: 20210801
  3. ALECTINIB [Suspect]
     Active Substance: ALECTINIB
     Indication: Product used for unknown indication
     Dosage: UNK
     Route: 065
  4. ACETAMINOPHEN\ASCORBIC ACID\PHENIRAMINE\PHENYLEPHRINE [Suspect]
     Active Substance: ACETAMINOPHEN\ASCORBIC ACID\PHENIRAMINE\PHENYLEPHRINE
     Indication: Product used for unknown indication
     Dosage: UNK
     Route: 065

REACTIONS (9)
  - Lung neoplasm malignant [Unknown]
  - Bone cancer [Unknown]
  - Hepatitis [Unknown]
  - Cystitis [Unknown]
  - Influenza [Unknown]
  - Cardiac disorder [Unknown]
  - Blood pressure increased [Unknown]
  - Blood creatine phosphokinase increased [Unknown]
  - Muscle spasms [Unknown]
